FAERS Safety Report 20788315 (Version 1)
Quarter: 2022Q2

REPORT INFORMATION
  Report Type: Spontaneous
  Country: CN (occurrence: None)
  Receive Date: 20220505
  Receipt Date: 20220505
  Transmission Date: 20220720
  Serious: Yes (Other)
  Sender: FDA-Public Use
  Company Number: CN-ROCHE-3085903

PATIENT
  Age: 54 Year
  Sex: Male

DRUGS (7)
  1. GAZYVA [Suspect]
     Active Substance: OBINUTUZUMAB
     Indication: Chronic lymphocytic leukaemia
     Dosage: 1000MG D1, 900MG D2
     Route: 042
     Dates: start: 20211029
  2. GAZYVA [Suspect]
     Active Substance: OBINUTUZUMAB
     Dosage: D0
     Route: 042
     Dates: start: 20220221
  3. FLUDARABINE [Concomitant]
     Active Substance: FLUDARABINE PHOSPHATE
     Indication: Chronic lymphocytic leukaemia
     Dosage: D3, D10, D12
     Dates: start: 20211029
  4. FLUDARABINE [Concomitant]
     Active Substance: FLUDARABINE PHOSPHATE
     Dosage: D1-D3
     Dates: start: 20220221
  5. CYCLOPHOSPHAMIDE [Concomitant]
     Active Substance: CYCLOPHOSPHAMIDE
     Indication: Chronic lymphocytic leukaemia
     Dosage: D3, D10, D12
     Dates: start: 20211029
  6. CYCLOPHOSPHAMIDE [Concomitant]
     Active Substance: CYCLOPHOSPHAMIDE
     Dosage: D1-D3
     Dates: start: 20220221
  7. ZANUBRUTINIB [Concomitant]
     Active Substance: ZANUBRUTINIB
     Indication: Chronic lymphocytic leukaemia

REACTIONS (2)
  - Tumour lysis syndrome [Unknown]
  - Off label use [Unknown]
